FAERS Safety Report 25529085 (Version 1)
Quarter: 2025Q3

REPORT INFORMATION
  Report Type: Spontaneous
  Country: CA (occurrence: CA)
  Receive Date: 20250708
  Receipt Date: 20250708
  Transmission Date: 20251020
  Serious: Yes (Other)
  Sender: CELLTRION
  Company Number: CA-CELLTRION INC.-2025CA021512

PATIENT

DRUGS (2)
  1. ADALIMUMAB [Suspect]
     Active Substance: ADALIMUMAB
     Indication: Takayasu^s arteritis
     Route: 058
  2. ADALIMUMAB [Suspect]
     Active Substance: ADALIMUMAB
     Dosage: 40.0 MILLIGRAM, 1 EVERY 1 WEEKS
     Route: 058

REACTIONS (8)
  - Condition aggravated [Unknown]
  - Neck pain [Unknown]
  - Xerophthalmia [Unknown]
  - Vision blurred [Unknown]
  - Constipation [Unknown]
  - Haematochezia [Unknown]
  - Drug ineffective [Unknown]
  - Intentional product use issue [Unknown]
